FAERS Safety Report 19741727 (Version 3)
Quarter: 2025Q1

REPORT INFORMATION
  Report Type: Spontaneous
  Country: US (occurrence: US)
  Receive Date: 20210825
  Receipt Date: 20250102
  Transmission Date: 20250409
  Serious: No
  Sender: SANOFI AVENTIS
  Company Number: US-SANOFI-00732145

PATIENT
  Age: 64 Year
  Sex: Female

DRUGS (5)
  1. DUPIXENT [Suspect]
     Active Substance: DUPILUMAB
     Indication: Asthma
     Route: 058
     Dates: start: 20210805, end: 20210805
  2. DUPIXENT [Suspect]
     Active Substance: DUPILUMAB
     Dosage: 300 MG, QOW
     Route: 058
     Dates: start: 20210819
  3. VITAMIN B [Concomitant]
     Active Substance: VITAMIN B
  4. TYMLOS [Concomitant]
     Active Substance: ABALOPARATIDE
  5. MUPIROCIN [Concomitant]
     Active Substance: MUPIROCIN

REACTIONS (4)
  - Injection site pain [Recovered/Resolved]
  - Product use issue [Unknown]
  - Accidental exposure to product [Unknown]
  - Exposure via skin contact [Unknown]

NARRATIVE: CASE EVENT DATE: 20210805
